FAERS Safety Report 15802974 (Version 2)
Quarter: 2019Q4

REPORT INFORMATION
  Report Type: Spontaneous
  Country: US (occurrence: US)
  Receive Date: 20190109
  Receipt Date: 20191223
  Transmission Date: 20200122
  Serious: Yes (Death, Hospitalization)
  Sender: FDA-Public Use
  Company Number: US-JNJFOC-20190108146

PATIENT
  Sex: Male

DRUGS (3)
  1. ELIQUIS [Suspect]
     Active Substance: APIXABAN
     Indication: THROMBOSIS
     Route: 065
  2. XARELTO [Suspect]
     Active Substance: RIVAROXABAN
     Indication: PRODUCT USED FOR UNKNOWN INDICATION
     Dosage: AT VARIED DOSES OF 15 AND 20 MG
     Route: 048
     Dates: start: 20150901
  3. COUMADIN [Suspect]
     Active Substance: WARFARIN SODIUM
     Dates: end: 20151004

REACTIONS (5)
  - Chronic kidney disease [Fatal]
  - Gastrointestinal haemorrhage [Unknown]
  - Lung neoplasm malignant [Fatal]
  - Epistaxis [Unknown]
  - Hepatic cancer [Fatal]

NARRATIVE: CASE EVENT DATE: 2015
